FAERS Safety Report 9352139 (Version 1)
Quarter: 2013Q2

REPORT INFORMATION
  Report Type: Spontaneous
  Country: US (occurrence: US)
  Receive Date: 20130617
  Receipt Date: 20130617
  Transmission Date: 20140414
  Serious: No
  Sender: FDA-Public Use
  Company Number: US-BIOGENIDEC-2013BI050913

PATIENT
  Age: 36 Year
  Sex: Female

DRUGS (2)
  1. AVONEX [Suspect]
     Indication: MULTIPLE SCLEROSIS
     Route: 030
     Dates: start: 20090930
  2. AVONEX [Suspect]
     Indication: MULTIPLE SCLEROSIS
     Route: 030
     Dates: start: 20101018

REACTIONS (6)
  - Knee operation [Not Recovered/Not Resolved]
  - Joint swelling [Unknown]
  - Contusion [Unknown]
  - Blood blister [Unknown]
  - Body temperature increased [Unknown]
  - Arthralgia [Recovered/Resolved]
